FAERS Safety Report 7520302-X (Version None)
Quarter: 2011Q2

REPORT INFORMATION
  Report Type: 
  Country: None (occurrence: None)
  Receive Date: 20110602
  Receipt Date: 20110524
  Transmission Date: 20111010
  Serious: Yes (Hospitalization)
  Sender: FDA-Public Use
  Company Number: US-BAXTER-2011BH017241

PATIENT
  Sex: Male

DRUGS (2)
  1. AMINO ACID INJ [Suspect]
     Indication: PRODUCT USED FOR UNKNOWN INDICATION
     Route: 033
  2. DIANEAL [Suspect]
     Indication: PERITONEAL DIALYSIS
     Route: 033

REACTIONS (4)
  - ABDOMINAL PAIN [None]
  - CHEST PAIN [None]
  - ABDOMINAL DISTENSION [None]
  - FLUID OVERLOAD [None]
